FAERS Safety Report 7363887-9 (Version None)
Quarter: 2011Q1

REPORT INFORMATION
  Report Type: 
  Country: None (occurrence: None)
  Receive Date: 20110321
  Receipt Date: 20110308
  Transmission Date: 20110831
  Serious: Yes (Hospitalization, Other)
  Sender: FDA-Public Use
  Company Number: JP-B.I. PHARMACEUTICALS,INC./RIDGEFIELD-2010-DE-07008GD

PATIENT
  Sex: Female
  Weight: 53 kg

DRUGS (10)
  1. MELOXICAM [Suspect]
     Indication: OSTEOARTHRITIS
     Dosage: 10 MG
     Route: 048
     Dates: end: 20110304
  2. CARBON DIOXIDE [Concomitant]
     Route: 065
  3. FLUTIDE [Concomitant]
     Dosage: 1 PUF
     Route: 055
  4. SEPAMIT [Concomitant]
     Route: 048
  5. EBASTEL OD [Concomitant]
     Dosage: 10 MG
     Route: 048
  6. SEREVENT [Concomitant]
     Dosage: 1 PUF
     Route: 055
  7. ITOROL [Concomitant]
     Dosage: 40 MG
     Route: 048
  8. SIGMART [Concomitant]
     Dosage: 15 MG
     Route: 048
  9. SELBEX [Concomitant]
     Dosage: 150 MG
     Route: 048
  10. LIPITOR [Concomitant]
     Dosage: 10 MG
     Route: 048

REACTIONS (9)
  - ANAEMIA [None]
  - GASTRITIS EROSIVE [None]
  - HAEMATOCHEZIA [None]
  - VITELLO-INTESTINAL DUCT REMNANT [None]
  - FLATULENCE [None]
  - SMALL INTESTINAL HAEMORRHAGE [None]
  - ILEAL ULCER [None]
  - HAEMORRHOIDS [None]
  - SMALL INTESTINE ULCER [None]
